FAERS Safety Report 25507450 (Version 1)
Quarter: 2025Q3

REPORT INFORMATION
  Report Type: Spontaneous
  Country: CA (occurrence: CA)
  Receive Date: 20250703
  Receipt Date: 20250703
  Transmission Date: 20251021
  Serious: Yes (Other)
  Sender: TEVA
  Company Number: CA-TEVA-VS-3346942

PATIENT
  Age: 10 Year
  Sex: Male
  Weight: 56 kg

DRUGS (1)
  1. METHYLPHENIDATE [Suspect]
     Active Substance: METHYLPHENIDATE
     Indication: Attention deficit hyperactivity disorder
     Dosage: ACT METHYLPHENIDATE ER
     Route: 048

REACTIONS (4)
  - Drug ineffective [Recovered/Resolved]
  - Distractibility [Recovered/Resolved]
  - Disturbance in attention [Recovered/Resolved]
  - Product substitution issue [Recovered/Resolved]
